FAERS Safety Report 5231599-3 (Version None)
Quarter: 2007Q1

REPORT INFORMATION
  Report Type: 
  Country: None (occurrence: None)
  Receive Date: 20070202
  Receipt Date: 20070122
  Transmission Date: 20070707
  Serious: Yes (Hospitalization)
  Sender: FDA-Public Use
  Company Number: SU-2007-005821

PATIENT
  Age: 80 Year
  Sex: Male
  Weight: 81.6475 kg

DRUGS (6)
  1. WELCHOL [Suspect]
     Indication: TOTAL BILE ACIDS
     Dosage: 1875 MG BID PO
     Route: 048
     Dates: start: 20061124, end: 20070115
  2. LISINOPRIL [Concomitant]
  3. LIPITOR [Concomitant]
  4. RANITIDINE [Concomitant]
  5. ASPIRIN [Concomitant]
  6. CENTRUM SILVER [Concomitant]

REACTIONS (2)
  - CONSTIPATION [None]
  - INTESTINAL OBSTRUCTION [None]
